FAERS Safety Report 8159706-3 (Version None)
Quarter: 2012Q1

REPORT INFORMATION
  Report Type: 
  Country: None (occurrence: None)
  Receive Date: 20120223
  Receipt Date: 20120209
  Transmission Date: 20120608
  Serious: Yes (Hospitalization, Other)
  Sender: FDA-Public Use
  Company Number: GB-WATSON-2011-16032

PATIENT
  Age: 26 Year
  Sex: Female

DRUGS (3)
  1. GABAPENTIN [Suspect]
     Indication: VULVOVAGINAL PAIN
     Dosage: 600 MG, TID
     Route: 065
     Dates: start: 20090101, end: 20110401
  2. AMITRIPTYLINE HCL [Suspect]
     Indication: DEPRESSION
     Dosage: 125 MG, UNKNOWN
     Route: 048
  3. FOLIC ACID [Concomitant]
     Indication: PROPHYLAXIS OF NEURAL TUBE DEFECT
     Dosage: UNK
     Route: 065

REACTIONS (1)
  - WITHDRAWAL SYNDROME [None]
